FAERS Safety Report 18256621 (Version 5)
Quarter: 2021Q3

REPORT INFORMATION
  Report Type: Report from Study
  Country: US (occurrence: US)
  Receive Date: 20200911
  Receipt Date: 20210806
  Transmission Date: 20211014
  Serious: Yes (Death, Other)
  Sender: FDA-Public Use
  Company Number: US-ACADIA PHARMACEUTICALS INC.-ACA-2020-PIM-002788

PATIENT
  Age: 85 Year
  Sex: Male

DRUGS (2)
  1. CARBIDOPA/LEVODOPA [Concomitant]
     Active Substance: CARBIDOPA\LEVODOPA
  2. NUPLAZID [Suspect]
     Active Substance: PIMAVANSERIN TARTRATE
     Indication: PARKINSON^S DISEASE
     Dosage: 34 MILLIGRAM, QD
     Route: 048
     Dates: start: 20190923, end: 202106

REACTIONS (10)
  - Therapeutic product effect decreased [Unknown]
  - Malaise [Unknown]
  - Depressed mood [Unknown]
  - Hallucination [Unknown]
  - Death [Recovered/Resolved]
  - Delusion [Unknown]
  - Hallucination [Unknown]
  - Loss of personal independence in daily activities [Unknown]
  - Insomnia [Unknown]
  - Hallucination, visual [Unknown]

NARRATIVE: CASE EVENT DATE: 202009
